FAERS Safety Report 7458881-3 (Version None)
Quarter: 2011Q2

REPORT INFORMATION
  Report Type: 
  Country: None (occurrence: None)
  Receive Date: 20110504
  Receipt Date: 20110421
  Transmission Date: 20111010
  Serious: Yes (Hospitalization)
  Sender: FDA-Public Use
  Company Number: PHHY2010US80003

PATIENT
  Sex: Female
  Weight: 85.261 kg

DRUGS (6)
  1. IRON [Concomitant]
     Indication: IRON DEFICIENCY
     Route: 048
  2. COZAAR [Concomitant]
     Indication: HYPERTENSION
     Route: 048
  3. PRILOSEC [Concomitant]
     Indication: GASTROOESOPHAGEAL REFLUX DISEASE
     Route: 048
  4. METOPROLOL SUCCINATE [Concomitant]
     Indication: HYPERTENSION
     Route: 048
  5. GLEEVEC [Suspect]
     Indication: GASTRIC CANCER
     Dosage: 400 MG DAILY
     Route: 048
     Dates: start: 20100222
  6. HYDROCHLOROTHIAZDE TAB [Concomitant]
     Indication: HYPERTENSION
     Route: 048

REACTIONS (2)
  - LARGE INTESTINAL HAEMORRHAGE [None]
  - COLONIC FISTULA [None]
